FAERS Safety Report 12380358 (Version 3)
Quarter: 2016Q3

REPORT INFORMATION
  Report Type: Report from Study
  Country: ES (occurrence: ES)
  Receive Date: 20160518
  Receipt Date: 20160722
  Transmission Date: 20161109
  Serious: Yes (Hospitalization, Other)
  Sender: FDA-Public Use
  Company Number: PHHO2016ES007106

PATIENT
  Age: 8 Year
  Sex: Male
  Weight: 20.9 kg

DRUGS (5)
  1. BLINDED PLACEBO [Suspect]
     Active Substance: INVESTIGATIONAL PRODUCT
     Indication: PYREXIA
     Dosage: CODE NOT BROKEN
     Route: 058
     Dates: start: 20141124
  2. BLINDED ACZ885 [Suspect]
     Active Substance: CANAKINUMAB
     Indication: PYREXIA
     Dosage: CODE NOT BROKEN
     Route: 058
     Dates: start: 20141124
  3. COLCHICINE. [Concomitant]
     Active Substance: COLCHICINE
     Indication: FAMILIAL MEDITERRANEAN FEVER
     Dosage: 0.5 MG, QD
     Route: 065
     Dates: start: 20130614, end: 20150510
  4. ACZ 885 [Suspect]
     Active Substance: CANAKINUMAB
     Indication: PYREXIA
     Dosage: 84 MG (4 MG/KG 4QS)
     Route: 058
     Dates: end: 20160406
  5. BLINDED NO TREATMENT RECEIVED [Suspect]
     Active Substance: INVESTIGATIONAL PRODUCT
     Indication: PYREXIA
     Dosage: CODE NOT BROKEN
     Route: 058
     Dates: start: 20141124

REACTIONS (1)
  - Appendicitis [Recovering/Resolving]

NARRATIVE: CASE EVENT DATE: 20160512
